FAERS Safety Report 5123327-7 (Version None)
Quarter: 2006Q4

REPORT INFORMATION
  Report Type: 
  Country: None (occurrence: None)
  Receive Date: 20061005
  Receipt Date: 20060926
  Transmission Date: 20070319
  Serious: Yes (Death, Hospitalization)
  Sender: FDA-Public Use
  Company Number: 2006-02434

PATIENT
  Age: 70 Year
  Sex: Female
  Weight: 42.4 kg

DRUGS (13)
  1. VELCADE [Suspect]
     Indication: MULTIPLE MYELOMA
     Dosage: 1.30 MG/M2, INTRAVENOUS
     Route: 042
     Dates: start: 20060825, end: 20060918
  2. AIRTAL (ACECLOFENAC) [Concomitant]
  3. TRIAZOLAM [Concomitant]
  4. CALCIUM CARBONATE [Concomitant]
  5. GANATON               (ITOPRIDE HYDROCHLORIDE) [Concomitant]
  6. METOCLOPRAMIDE [Concomitant]
  7. CYTOTEC [Concomitant]
  8. MEGACE [Concomitant]
  9. DIGOXIN [Concomitant]
  10. OXYCONTIN [Concomitant]
  11. LASIX [Concomitant]
  12. ACETAMINOPHEN W/ CODEINE [Concomitant]
  13. DURAGESIC-100 [Concomitant]

REACTIONS (6)
  - LOSS OF CONSCIOUSNESS [None]
  - NEUTROPENIA [None]
  - PNEUMONIA [None]
  - RESPIRATORY FAILURE [None]
  - SEPSIS [None]
  - THROMBOCYTOPENIA [None]
